FAERS Safety Report 6287161-7 (Version None)
Quarter: 2009Q3

REPORT INFORMATION
  Report Type: 
  Country: None (occurrence: None)
  Receive Date: 20090728
  Receipt Date: 20090716
  Transmission Date: 20100115
  Serious: Yes (Hospitalization)
  Sender: FDA-Public Use
  Company Number: GB-ELI_LILLY_AND_COMPANY-GB200907003368

PATIENT
  Age: 50 Year
  Sex: Female

DRUGS (3)
  1. OLANZAPINE [Suspect]
     Indication: DEPRESSION
     Dosage: 2.5 MG, DAILY (1/D)
  2. SERTRALINE HYDROCHLORIDE [Concomitant]
     Indication: DEPRESSION
     Dosage: 50 MG, DAILY (1/D)
     Route: 048
  3. OMEPRAZOLE [Concomitant]
     Indication: STRESS ULCER
     Dosage: UNK, UNK
     Route: 048

REACTIONS (8)
  - BLOOD ALBUMIN DECREASED [None]
  - CONTINUOUS HAEMODIAFILTRATION [None]
  - FALL [None]
  - HEAD INJURY [None]
  - OFF LABEL USE [None]
  - RESPIRATORY DISORDER [None]
  - SOMNOLENCE [None]
  - SUBARACHNOID HAEMORRHAGE [None]
